FAERS Safety Report 12313875 (Version 1)
Quarter: 2016Q2

REPORT INFORMATION
  Report Type: Spontaneous
  Country: US (occurrence: US)
  Receive Date: 20160428
  Receipt Date: 20160428
  Transmission Date: 20160815
  Serious: No
  Sender: FDA-Public Use
  Company Number: US-BAUSCH-BL-2016-001248

PATIENT
  Sex: Female

DRUGS (2)
  1. PICATO [Suspect]
     Active Substance: INGENOL MEBUTATE
     Indication: SKIN CANCER
     Route: 065
     Dates: start: 2015
  2. ALDARA [Suspect]
     Active Substance: IMIQUIMOD
     Indication: SKIN CANCER
     Route: 065
     Dates: start: 2015

REACTIONS (2)
  - Hypersensitivity [Unknown]
  - Drug ineffective [Unknown]

NARRATIVE: CASE EVENT DATE: 2015
